FAERS Safety Report 8463680-X (Version None)
Quarter: 2012Q2

REPORT INFORMATION
  Report Type: 
  Country: None (occurrence: None)
  Receive Date: 20120625
  Receipt Date: 20120613
  Transmission Date: 20120825
  Serious: Yes (Other)
  Sender: FDA-Public Use
  Company Number: JP-ROCHE-1050125

PATIENT
  Sex: Male

DRUGS (16)
  1. NORVASC [Concomitant]
  2. RANIBIZUMAB [Suspect]
     Route: 050
     Dates: start: 20090729
  3. ASPIRIN [Concomitant]
  4. GASMOTIN [Concomitant]
  5. RANIBIZUMAB [Suspect]
     Route: 050
     Dates: start: 20110302
  6. RANIBIZUMAB [Suspect]
     Route: 050
     Dates: start: 20110429
  7. RANIBIZUMAB [Suspect]
     Route: 050
     Dates: start: 20090701
  8. LEVOFLOXACIN [Concomitant]
     Dates: start: 20090601, end: 20110401
  9. CARVEDILOL [Concomitant]
  10. RANIBIZUMAB [Suspect]
     Route: 050
     Dates: start: 20110330
  11. SIGMART [Concomitant]
  12. ISOSORBIDE DINITRATE [Concomitant]
  13. RANIBIZUMAB [Suspect]
     Indication: AGE-RELATED MACULAR DEGENERATION
     Route: 050
     Dates: start: 20090603
  14. VERTEPORFIN [Suspect]
     Indication: AGE-RELATED MACULAR DEGENERATION
     Route: 042
     Dates: start: 20090201, end: 20090501
  15. OLMESARTAN MEDOXOMIL [Concomitant]
  16. LANSOPRAZOLE [Concomitant]

REACTIONS (2)
  - VISUAL ACUITY REDUCED [None]
  - CATARACT NUCLEAR [None]
